FAERS Safety Report 7604184-3 (Version None)
Quarter: 2011Q3

REPORT INFORMATION
  Report Type: 
  Country: None (occurrence: None)
  Receive Date: 20110712
  Receipt Date: 20110707
  Transmission Date: 20111222
  Serious: Yes (Disabling)
  Sender: FDA-Public Use
  Company Number: GB-MERCK-1107GBR00030

PATIENT
  Age: 65 Year
  Sex: Male
  Weight: 73 kg

DRUGS (4)
  1. ASPIRIN [Concomitant]
     Indication: TRANSIENT ISCHAEMIC ATTACK
     Route: 048
     Dates: start: 20081112
  2. TAMSULOSIN HYDROCHLORIDE [Concomitant]
     Indication: URINARY RETENTION
     Route: 048
     Dates: start: 20000424
  3. FINASTERIDE [Concomitant]
     Indication: PROSTATISM
     Route: 048
     Dates: start: 20060814
  4. ZOCOR [Suspect]
     Indication: TRANSIENT ISCHAEMIC ATTACK
     Route: 048
     Dates: start: 20090325, end: 20100729

REACTIONS (5)
  - LETHARGY [None]
  - PARKINSONISM [None]
  - DYSPHAGIA [None]
  - FLAT AFFECT [None]
  - GAIT DISTURBANCE [None]
